FAERS Safety Report 7311054-7 (Version None)
Quarter: 2011Q1

REPORT INFORMATION
  Report Type: 
  Country: None (occurrence: None)
  Receive Date: 20110224
  Receipt Date: 20110216
  Transmission Date: 20110831
  Serious: Yes (Other)
  Sender: FDA-Public Use
  Company Number: JP-PFIZER INC-2011034757

PATIENT
  Age: 87 Year
  Sex: Female

DRUGS (2)
  1. LYRICA [Suspect]
     Dosage: 25 MG, 1X/DAY
     Route: 048
     Dates: end: 20100217
  2. RIVOTRIL [Concomitant]
     Dosage: 1.5 MG, 1X/DAY

REACTIONS (1)
  - CONVULSION [None]
